FAERS Safety Report 5320955-0 (Version None)
Quarter: 2007Q2

REPORT INFORMATION
  Report Type: 
  Country: None (occurrence: None)
  Receive Date: 20070504
  Receipt Date: 20070425
  Transmission Date: 20071010
  Serious: Yes (Congenital Anomaly)
  Sender: FDA-Public Use
  Company Number: S06-USA-05333-02

PATIENT
  Sex: Male
  Weight: 2.8622 kg

DRUGS (4)
  1. LEXAPRO [Suspect]
     Dosage: 10 MG QD TRANSPLACENTAL
     Route: 064
     Dates: start: 20060601, end: 20060701
  2. PRENATAL VITAMIN (NOS) [Concomitant]
  3. LEVOXYL [Concomitant]
  4. RHOGAM [Concomitant]

REACTIONS (4)
  - ATRIOVENTRICULAR SEPTAL DEFECT [None]
  - CAESAREAN SECTION [None]
  - DRUG EXPOSURE DURING PREGNANCY [None]
  - TRISOMY 21 [None]
